FAERS Safety Report 16322605 (Version 9)
Quarter: 2020Q1

REPORT INFORMATION
  Report Type: Report from Study
  Country: US (occurrence: US)
  Receive Date: 20190516
  Receipt Date: 20200330
  Transmission Date: 20200409
  Serious: Yes (Hospitalization)
  Sender: FDA-Public Use
  Company Number: US-ACTELION-A-US2016-135905

PATIENT
  Age: 60 Year
  Sex: Female
  Weight: 65.76 kg

DRUGS (11)
  1. VELETRI [Suspect]
     Active Substance: EPOPROSTENOL
     Dosage: 82 NG/KG, PER MIN
     Route: 042
  2. VELETRI [Suspect]
     Active Substance: EPOPROSTENOL
     Dosage: 107 NG/KG, PER MIN
     Route: 042
  3. VELETRI [Suspect]
     Active Substance: EPOPROSTENOL
     Dosage: 79 NG/KG, PER MIN
     Route: 042
     Dates: start: 20121119
  4. VELETRI [Suspect]
     Active Substance: EPOPROSTENOL
     Dosage: 81 NG/KG, PER MIN
     Route: 042
  5. VELETRI [Suspect]
     Active Substance: EPOPROSTENOL
     Dosage: 118 NG/KG, PER MIN
     Route: 042
  6. VELETRI [Suspect]
     Active Substance: EPOPROSTENOL
     Dosage: 122 NG/KG, PER MIN
     Route: 042
  7. COUMADIN [Concomitant]
     Active Substance: WARFARIN SODIUM
  8. VELETRI [Suspect]
     Active Substance: EPOPROSTENOL
     Indication: PULMONARY HYPERTENSION
     Dosage: 119 NG/KG, PER MIN
     Route: 042
  9. VELETRI [Suspect]
     Active Substance: EPOPROSTENOL
     Dosage: 113 NG/KG, PER MIN
     Route: 042
  10. VELETRI [Suspect]
     Active Substance: EPOPROSTENOL
     Dosage: 114 NG/KG, PER MIN
     Route: 042
  11. LETAIRIS [Concomitant]
     Active Substance: AMBRISENTAN

REACTIONS (32)
  - Pneumonia [Unknown]
  - Palpitations [Unknown]
  - Influenza like illness [Unknown]
  - Dyspnoea exertional [Unknown]
  - Renal stone removal [Recovered/Resolved]
  - Heart rate increased [Unknown]
  - Tachycardia [Unknown]
  - Flushing [Unknown]
  - Pain in jaw [Unknown]
  - Dizziness [Unknown]
  - Chest pain [Unknown]
  - Gastrooesophageal reflux disease [Unknown]
  - Rash [Unknown]
  - Fluid overload [Unknown]
  - Diarrhoea [Unknown]
  - Hospitalisation [Unknown]
  - Haematuria [Unknown]
  - Haemoglobin decreased [Unknown]
  - Infected naevus [Unknown]
  - Device leakage [Unknown]
  - Pain [Unknown]
  - Transfusion [Unknown]
  - Pericardial effusion [Unknown]
  - Pleural effusion [Unknown]
  - Malaise [Unknown]
  - Nephrolithiasis [Unknown]
  - Erythema [Unknown]
  - Anaemia [Unknown]
  - Dyspnoea [Unknown]
  - Device related infection [Unknown]
  - Catheter site discharge [Unknown]
  - Catheter management [Unknown]

NARRATIVE: CASE EVENT DATE: 201708
